FAERS Safety Report 8428676 (Version 6)
Quarter: 2012Q4

REPORT INFORMATION
  Report Type: 
  Country: US (occurrence: US)
  Receive Date: 20120227
  Receipt Date: 20121105
  Transmission Date: 20130627
  Serious: Yes (Other)
  Sender: FDA-Public Use
  Company Number: US-ROCHE-1043144

PATIENT
  Age: 23 Year
  Sex: Female
  Weight: 118.04 kg

DRUGS (7)
  1. XOLAIR [Suspect]
     Indication: ASTHMA
     Route: 058
     Dates: start: 20120222
  2. SYMBICORT [Concomitant]
     Indication: ASTHMA
  3. PREDNISONE [Concomitant]
     Route: 065
     Dates: start: 20120222
  4. BENADRYL [Concomitant]
     Route: 065
     Dates: start: 20120222
  5. ALPRAZOLAM [Concomitant]
     Indication: ANXIETY
     Route: 048
  6. ALBUTEROL SULFATE [Concomitant]
     Dosage: NEBULISATION,every 4 as required
     Route: 065
  7. VENTOLIN HFA [Concomitant]
     Indication: ASTHMA
     Dosage: inhalation,every 4 as required.
     Route: 065

REACTIONS (8)
  - Anaphylactic reaction [Recovered/Resolved]
  - Abdominal pain upper [Recovered/Resolved]
  - Dizziness [Recovered/Resolved]
  - Throat tightness [Recovered/Resolved]
  - Loss of consciousness [Recovered/Resolved]
  - Oxygen saturation decreased [Recovered/Resolved]
  - Hypotension [Recovered/Resolved]
  - Heart rate decreased [Recovered/Resolved]
